FAERS Safety Report 5321197-5 (Version None)
Quarter: 2007Q1

REPORT INFORMATION
  Report Type: 
  Country: None (occurrence: None)
  Receive Date: 20070215
  Receipt Date: 20061108
  Transmission Date: 20070707
  Serious: Yes (Other)
  Sender: FDA-Public Use
  Company Number: 2006BH014509

PATIENT
  Age: 63 Year
  Sex: Male

DRUGS (2)
  1. EXTRANEAL [Suspect]
     Indication: DIABETIC NEPHROPATHY
     Dosage: IP
     Dates: start: 20061004, end: 20061001
  2. KEFZOL [Concomitant]

REACTIONS (3)
  - PERITONITIS BACTERIAL [None]
  - RASH ERYTHEMATOUS [None]
  - SKIN EXFOLIATION [None]
